FAERS Safety Report 24358029 (Version 2)
Quarter: 2025Q3

REPORT INFORMATION
  Report Type: Spontaneous
  Country: US (occurrence: US)
  Receive Date: 20240924
  Receipt Date: 20250916
  Transmission Date: 20251020
  Serious: Yes (Other)
  Sender: ELI LILLY AND COMPANY
  Company Number: US-ELI_LILLY_AND_COMPANY-US202409011599

PATIENT
  Age: 76 Year
  Sex: Female

DRUGS (1)
  1. VERZENIO [Suspect]
     Active Substance: ABEMACICLIB
     Indication: Breast cancer
     Route: 065

REACTIONS (3)
  - Interstitial lung disease [Recovered/Resolved]
  - Malignant neoplasm progression [Recovered/Resolved]
  - Dyspnoea [Not Recovered/Not Resolved]
